FAERS Safety Report 4280004-2 (Version None)
Quarter: 2004Q1

REPORT INFORMATION
  Report Type: 
  Country: None (occurrence: None)
  Receive Date: 20040126
  Receipt Date: 20040116
  Transmission Date: 20041129
  Serious: Yes (Hospitalization)
  Sender: FDA-Public Use
  Company Number: 2004UW00780

PATIENT
  Age: 54 Year
  Sex: Male
  Weight: 92 kg

DRUGS (8)
  1. ATENOLOL [Suspect]
     Indication: PALPITATIONS
     Dates: start: 20030216, end: 20030320
  2. VALSARTAN [Suspect]
     Indication: ESSENTIAL HYPERTENSION
     Dates: start: 19980805
  3. AMLODIPINE BESYLATE [Suspect]
     Indication: ESSENTIAL HYPERTENSION
     Dates: start: 19980805
  4. LASIX [Concomitant]
  5. LIPITOR [Concomitant]
  6. POTASSIUM [Concomitant]
  7. K-DUR 10 [Concomitant]
  8. LEXAPRO [Concomitant]

REACTIONS (6)
  - ASTHENIA [None]
  - BRADYCARDIA [None]
  - DIZZINESS [None]
  - HEADACHE [None]
  - HYPERHIDROSIS [None]
  - NAUSEA [None]
